FAERS Safety Report 6968917-1 (Version None)
Quarter: 2010Q3

REPORT INFORMATION
  Report Type: 
  Country: None (occurrence: None)
  Receive Date: 20100907
  Receipt Date: 20100831
  Transmission Date: 20110219
  Serious: Yes (Life-Threatening, Hospitalization, Disabling, Other)
  Sender: FDA-Public Use
  Company Number: DE-TYCO HEALTHCARE/MALLINCKRODT-T201001670

PATIENT
  Sex: Female
  Weight: 25 kg

DRUGS (1)
  1. EXALGO [Suspect]
     Dosage: 17 TABLETS
     Route: 048
     Dates: start: 20100410, end: 20100410

REACTIONS (12)
  - ACCIDENTAL DRUG INTAKE BY CHILD [None]
  - APALLIC SYNDROME [None]
  - ASPIRATION [None]
  - BRAIN OEDEMA [None]
  - CEREBELLAR HAEMORRHAGE [None]
  - CEREBROVASCULAR ACCIDENT [None]
  - COMA [None]
  - HYDROCEPHALUS [None]
  - HYPOXIA [None]
  - OVERDOSE [None]
  - RESPIRATORY DEPRESSION [None]
  - SOMNOLENCE [None]
